FAERS Safety Report 9119403 (Version 1)
Quarter: 2013Q1

REPORT INFORMATION
  Report Type: Spontaneous
  Country: US (occurrence: None)
  Receive Date: 20130222
  Receipt Date: 20130222
  Transmission Date: 20140127
  Serious: Yes (Other)
  Sender: FDA-Public Use
  Company Number: None

PATIENT
  Age: 60 Year
  Sex: Female
  Weight: 83.92 kg

DRUGS (2)
  1. ATORVASTATIN [Suspect]
     Indication: BLOOD CHOLESTEROL INCREASED
     Dosage: 80MG DAILY PO
     Route: 048
     Dates: start: 20111226
  2. ATORVASTATIN [Suspect]
     Indication: CORONARY ARTERY DISEASE
     Dosage: 80MG DAILY PO
     Route: 048
     Dates: start: 20111226

REACTIONS (3)
  - Product substitution issue [None]
  - Muscle spasms [None]
  - Muscle spasms [None]
